FAERS Safety Report 4991413-8 (Version None)
Quarter: 2006Q2

REPORT INFORMATION
  Report Type: 
  Country: None (occurrence: None)
  Receive Date: 20060502
  Receipt Date: 20060419
  Transmission Date: 20061013
  Serious: Yes (Other)
  Sender: FDA-Public Use
  Company Number: HQWYE878920APR06

PATIENT
  Age: 46 Year
  Sex: Male

DRUGS (2)
  1. EFFEXOR [Suspect]
     Dosage: ORAL
     Route: 048
  2. CANNABIS (CANNABIS, ) [Suspect]

REACTIONS (3)
  - HOMICIDAL IDEATION [None]
  - PSYCHIATRIC SYMPTOM [None]
  - SUICIDAL IDEATION [None]
